FAERS Safety Report 6579141-9 (Version None)
Quarter: 2010Q1

REPORT INFORMATION
  Report Type: 
  Country: None (occurrence: None)
  Receive Date: 20100212
  Receipt Date: 20100128
  Transmission Date: 20100710
  Serious: Yes (Hospitalization)
  Sender: FDA-Public Use
  Company Number: GB-MYLANLABS-2010S1001484

PATIENT
  Age: 40 Year
  Sex: Male

DRUGS (7)
  1. MIRTAZAPINE [Suspect]
     Indication: DEPRESSION
     Route: 048
     Dates: start: 20091101, end: 20091231
  2. MIRTAZAPINE [Suspect]
     Indication: PSYCHIATRIC SYMPTOM
     Route: 048
     Dates: start: 20091101, end: 20091231
  3. MIRTAZAPINE [Suspect]
     Indication: DEPRESSED MOOD
     Route: 048
     Dates: start: 20091101, end: 20091231
  4. ACAMPROSATE CALCIUM [Concomitant]
     Indication: DRUG USE FOR UNKNOWN INDICATION
     Dates: start: 20090801
  5. ANTABUSE [Concomitant]
     Indication: DRUG USE FOR UNKNOWN INDICATION
  6. DISULFIRAM [Concomitant]
     Indication: DRUG USE FOR UNKNOWN INDICATION
     Dates: start: 20090801
  7. FLUOXETINE [Concomitant]
     Indication: DRUG USE FOR UNKNOWN INDICATION
     Dates: start: 20090801, end: 20091101

REACTIONS (4)
  - AGITATION [None]
  - PANIC ATTACK [None]
  - PSYCHOTIC DISORDER [None]
  - WITHDRAWAL SYNDROME [None]
